FAERS Safety Report 4785625-6 (Version None)
Quarter: 2005Q4

REPORT INFORMATION
  Report Type: 
  Country: None (occurrence: None)
  Receive Date: 20051003
  Receipt Date: 20050504
  Transmission Date: 20060501
  Serious: Yes (Death, Life-Threatening, Hospitalization)
  Sender: FDA-Public Use
  Company Number: US-BOEHRINGER INGELHEIM PHARMACEUTICALS, INC.-2005-BP-07533BP

PATIENT
  Sex: Male
  Weight: 83.91 kg

DRUGS (12)
  1. TIPRANAVIR / RITONAVIR CAPSULES [Suspect]
     Indication: HIV INFECTION
     Dosage: TPV/R 1000/400 MG
     Route: 048
     Dates: start: 20041115, end: 20050809
  2. CHEMOTHERAPY [Suspect]
     Indication: LYMPHOMA
  3. ENFUVIRTIDE [Concomitant]
     Indication: HIV INFECTION
     Route: 058
     Dates: start: 20041115
  4. LAMIVUDINE [Concomitant]
     Indication: HIV INFECTION
     Route: 048
     Dates: start: 20041115
  5. ZIDOVUDINE [Concomitant]
     Indication: HIV INFECTION
     Route: 048
     Dates: start: 20041115
  6. TENOFOVIR [Concomitant]
     Indication: HIV INFECTION
     Route: 048
     Dates: start: 20041115
  7. CYCLOPHOSPHAMIDE [Concomitant]
     Indication: LYMPHOMA
     Route: 042
     Dates: end: 20050426
  8. ADRIAMYCIN PFS [Concomitant]
     Indication: LYMPHOMA
     Route: 042
     Dates: end: 20050426
  9. VINCRISTINE [Concomitant]
     Indication: LYMPHOMA
     Route: 042
     Dates: end: 20050426
  10. PREDNISONE [Concomitant]
     Indication: LYMPHOMA
     Route: 042
     Dates: end: 20050426
  11. RITUXIMAB [Concomitant]
     Indication: LYMPHOMA
     Route: 042
     Dates: end: 20050426
  12. METRONIDAZOLE [Concomitant]
     Indication: PYREXIA
     Route: 042
     Dates: start: 20050430, end: 20050501

REACTIONS (9)
  - ASTHENIA [None]
  - CANDIDIASIS [None]
  - DEATH [None]
  - DYSPHAGIA [None]
  - FATIGUE [None]
  - FEBRILE NEUTROPENIA [None]
  - LYMPHOMA [None]
  - PANCYTOPENIA [None]
  - PYREXIA [None]
